FAERS Safety Report 5465823-9 (Version None)
Quarter: 2007Q3

REPORT INFORMATION
  Report Type: 
  Country: None (occurrence: None)
  Receive Date: 20070919
  Receipt Date: 20070919
  Transmission Date: 20080115
  Serious: Yes (Hospitalization)
  Sender: FDA-Public Use
  Company Number: None

PATIENT
  Age: 55 Year
  Sex: Male
  Weight: 69 kg

DRUGS (6)
  1. WARFARIN SODIUM [Suspect]
     Indication: PULMONARY EMBOLISM
     Dosage: 3 MG OF 1/WEEK SC SSR126517 + PLACEBO WARFARIN VERSUS PLACEBO SSR126517 + ORAL INR-ADJUSTED WARFARIN
     Route: 058
     Dates: start: 20070208
  2. ENOXAPARIN SODIUM [Suspect]
     Indication: PULMONARY EMBOLISM
     Dosage: 1 MG/KG BID - SUBCUTANEOUS
     Route: 058
     Dates: start: 20070207
  3. FRUSEMIDE [Concomitant]
  4. VENLAFAXIINE HCL [Concomitant]
  5. PARACETAMOL [Concomitant]
  6. FELODIPINE [Concomitant]

REACTIONS (13)
  - ACTIVATED PARTIAL THROMBOPLASTIN TIME PROLONGED [None]
  - ANGINA PECTORIS [None]
  - BLOOD ALKALINE PHOSPHATASE INCREASED [None]
  - BLOOD BILIRUBIN INCREASED [None]
  - CHEST PAIN [None]
  - CHOLELITHIASIS [None]
  - COAGULOPATHY [None]
  - FLATULENCE [None]
  - GALLBLADDER DISORDER [None]
  - INTERNATIONAL NORMALISED RATIO INCREASED [None]
  - OVERDOSE [None]
  - PAIN IN EXTREMITY [None]
  - ULTRASOUND ABDOMEN ABNORMAL [None]
